FAERS Safety Report 6690877-1 (Version None)
Quarter: 2010Q2

REPORT INFORMATION
  Report Type: 
  Country: None (occurrence: None)
  Receive Date: 20100421
  Receipt Date: 20100409
  Transmission Date: 20101027
  Serious: Yes (Other)
  Sender: FDA-Public Use
  Company Number: GB-PFIZER INC-2010027906

PATIENT
  Age: 55 Year
  Sex: Female
  Weight: 60 kg

DRUGS (4)
  1. LYRICA [Suspect]
     Indication: NEUROPATHY PERIPHERAL
     Dosage: 40 MG, UNK
  2. LYRICA [Suspect]
     Dosage: 50 MG, 1X/DAY, NIGHTLY
  3. LITHIUM CARBONATE [Concomitant]
     Dosage: 1 G, 1X/DAY
     Route: 048
  4. SERTRALINE [Concomitant]
     Dosage: 100 MG, UNK
     Route: 048

REACTIONS (7)
  - ANXIETY [None]
  - DIARRHOEA [None]
  - FEELING ABNORMAL [None]
  - INSOMNIA [None]
  - PYREXIA [None]
  - TREMOR [None]
  - WITHDRAWAL SYNDROME [None]
